FAERS Safety Report 5514475-8 (Version None)
Quarter: 2007Q4

REPORT INFORMATION
  Report Type: 
  Country: None (occurrence: None)
  Receive Date: 20071106
  Receipt Date: 20070621
  Transmission Date: 20080405
  Serious: Yes (Death)
  Sender: FDA-Public Use
  Company Number: US200706004936

PATIENT
  Age: 56 Year
  Sex: Male

DRUGS (1)
  1. PROZAC [Suspect]

REACTIONS (2)
  - COMPLETED SUICIDE [None]
  - DIABETES MELLITUS [None]
